FAERS Safety Report 11836241 (Version 1)
Quarter: 2015Q4

REPORT INFORMATION
  Report Type: Spontaneous
  Country: US (occurrence: None)
  Receive Date: 20151214
  Receipt Date: 20151214
  Transmission Date: 20160305
  Serious: Yes (Hospitalization)
  Sender: FDA-Public Use
  Company Number: None

PATIENT
  Age: 56 Year
  Sex: Female
  Weight: 79.38 kg

DRUGS (1)
  1. SUMATRIPTAN INJ USP 6MG/0.5ML DR REDDYS [Suspect]
     Active Substance: SUMATRIPTAN
     Indication: MIGRAINE
     Dosage: 2 X 0.5 ML PRN/AS NEEDED
     Route: 058
     Dates: start: 20151117, end: 20151201

REACTIONS (1)
  - Headache [None]

NARRATIVE: CASE EVENT DATE: 20151130
